FAERS Safety Report 9442769 (Version 1)
Quarter: 2013Q3

REPORT INFORMATION
  Report Type: Spontaneous
  Country: US (occurrence: US)
  Receive Date: 20130806
  Receipt Date: 20130806
  Transmission Date: 20140515
  Serious: No
  Sender: FDA-Public Use
  Company Number: US-ABBOTT-13P-163-1076342-00

PATIENT
  Sex: Male

DRUGS (2)
  1. DEPAKOTE ER [Suspect]
     Indication: MANIA
     Dosage: UNKNOWN
  2. DEPAKOTE ER [Suspect]
     Indication: BIPOLAR DISORDER

REACTIONS (1)
  - Tooth erosion [Unknown]
